FAERS Safety Report 21729021 (Version 1)
Quarter: 2022Q4

REPORT INFORMATION
  Report Type: Report from Study
  Country: US (occurrence: US)
  Receive Date: 20221214
  Receipt Date: 20221214
  Transmission Date: 20230112
  Serious: No
  Sender: FDA-Public Use
  Company Number: US-ABBVIE-4229129

PATIENT
  Sex: Female

DRUGS (4)
  1. HUMIRA [Suspect]
     Active Substance: ADALIMUMAB
     Indication: Psoriasis
     Route: 058
     Dates: start: 202207
  2. Moderna [Concomitant]
     Indication: COVID-19 immunisation
     Dosage: FREQUENCY 1-1-ONCE?FIRST DOSE
     Route: 030
     Dates: start: 20210308, end: 20210308
  3. Moderna [Concomitant]
     Indication: COVID-19 immunisation
     Dosage: FREQUENCY 1-1-ONCE?SECOND  DOSE
     Route: 030
     Dates: start: 20210405, end: 20210405
  4. Moderna [Concomitant]
     Indication: COVID-19 immunisation
     Dosage: FREQUENCY 1-1-ONCE?THIRD/BOOSTER DOSE
     Route: 030
     Dates: start: 20211220, end: 20211220

REACTIONS (2)
  - Psoriasis [Recovering/Resolving]
  - Drug ineffective [Not Recovered/Not Resolved]
